FAERS Safety Report 20656780 (Version 1)
Quarter: 2022Q1

REPORT INFORMATION
  Report Type: Spontaneous
  Country: CN (occurrence: CN)
  Receive Date: 20220331
  Receipt Date: 20220331
  Transmission Date: 20220423
  Serious: Yes (Other)
  Sender: FDA-Public Use
  Company Number: CN-GRUNENTHAL-2022-102579

PATIENT
  Age: 88 Year
  Sex: Female
  Weight: 72 kg

DRUGS (3)
  1. TRAMADOL HYDROCHLORIDE [Interacting]
     Active Substance: TRAMADOL HYDROCHLORIDE
     Indication: Pain in extremity
     Dosage: 0.1 GRAM, EVERY 12 HRS
     Route: 048
     Dates: start: 20220125, end: 20220126
  2. LORAZEPAM [Interacting]
     Active Substance: LORAZEPAM
     Indication: Anxiety
     Dosage: 0.5 GRAM, 2/DAY
     Route: 048
     Dates: start: 20220124, end: 20220126
  3. LORAZEPAM [Interacting]
     Active Substance: LORAZEPAM
     Indication: Arthralgia

REACTIONS (4)
  - Somnolence [Recovered/Resolved]
  - Drug interaction [Recovered/Resolved]
  - Unresponsive to stimuli [Recovered/Resolved]
  - Hyperhidrosis [Recovered/Resolved]

NARRATIVE: CASE EVENT DATE: 20220125
